FAERS Safety Report 4691540-9 (Version None)
Quarter: 2005Q2

REPORT INFORMATION
  Report Type: 
  Country: None (occurrence: None)
  Receive Date: 20050608
  Receipt Date: 20050125
  Transmission Date: 20051028
  Serious: Yes (Life-Threatening, Hospitalization)
  Sender: FDA-Public Use
  Company Number: 393593

PATIENT
  Age: 52 Year
  Sex: Female

DRUGS (1)
  1. ACCUTANE [Suspect]
     Indication: ROSACEA
     Dosage: ORAL
     Route: 048
     Dates: start: 20040404, end: 20040916

REACTIONS (10)
  - ABDOMINAL PAIN UPPER [None]
  - CHAPPED LIPS [None]
  - DIZZINESS [None]
  - DRY MOUTH [None]
  - FATIGUE [None]
  - HEADACHE [None]
  - HOT FLUSH [None]
  - HYPERACUSIS [None]
  - RED BLOOD CELL COUNT DECREASED [None]
  - SKIN FISSURES [None]
